FAERS Safety Report 8132250-5 (Version None)
Quarter: 2012Q1

REPORT INFORMATION
  Report Type: 
  Country: None (occurrence: None)
  Receive Date: 20120213
  Receipt Date: 20120206
  Transmission Date: 20120608
  Serious: Yes (Hospitalization)
  Sender: FDA-Public Use
  Company Number: US-BAYER-2011-027783

PATIENT
  Age: 29 Year
  Sex: Female
  Weight: 76.19 kg

DRUGS (6)
  1. ZELNORM [Concomitant]
  2. COLACE [Concomitant]
     Dosage: UNK UNK, QD
     Route: 048
  3. DULCOLAX [Concomitant]
     Route: 048
  4. YASMIN [Suspect]
     Indication: CONTRACEPTION
     Dosage: UNK
     Dates: start: 20050101, end: 20080101
  5. DROSPIRENONE AND ETHINYL ESTRADIOL [Suspect]
     Indication: CONTRACEPTION
  6. DEPO-PROVERA [Concomitant]

REACTIONS (10)
  - EMOTIONAL DISTRESS [None]
  - CHOLECYSTECTOMY [None]
  - FATIGUE [None]
  - NERVOUSNESS [None]
  - NAUSEA [None]
  - CHOLECYSTITIS CHRONIC [None]
  - ABDOMINAL PAIN [None]
  - FEAR OF DEATH [None]
  - VOMITING [None]
  - DEPRESSION [None]
